FAERS Safety Report 25012087 (Version 2)
Quarter: 2025Q1

REPORT INFORMATION
  Report Type: Report from Study
  Country: US (occurrence: US)
  Receive Date: 20250226
  Receipt Date: 20250312
  Transmission Date: 20250408
  Serious: Yes (Other)
  Sender: AMGEN
  Company Number: US-AMGEN-USASL2024188570

PATIENT
  Age: 47 Year
  Sex: Female

DRUGS (47)
  1. OTEZLA [Suspect]
     Active Substance: APREMILAST
     Indication: Psoriasis
     Dosage: 30 MILLIGRAM, BID
     Route: 048
     Dates: start: 201609, end: 201610
  2. OTEZLA [Suspect]
     Active Substance: APREMILAST
     Dosage: 30 MILLIGRAM, BID
     Route: 048
     Dates: start: 201809, end: 2018
  3. OTEZLA [Suspect]
     Active Substance: APREMILAST
     Dosage: 30 MILLIGRAM, BID
     Route: 048
     Dates: start: 20250212
  4. ENBREL [Suspect]
     Active Substance: ETANERCEPT
     Indication: Product used for unknown indication
     Route: 065
  5. RITUXIMAB [Suspect]
     Active Substance: RITUXIMAB
     Indication: Product used for unknown indication
     Route: 065
  6. PROVENTIL HFA [Concomitant]
     Active Substance: ALBUTEROL SULFATE
     Indication: Wheezing
     Dates: start: 20240919
  7. PROVENTIL HFA [Concomitant]
     Active Substance: ALBUTEROL SULFATE
     Indication: Dyspnoea
  8. VENTOLIN HFA [Concomitant]
     Active Substance: ALBUTEROL SULFATE
     Indication: Wheezing
     Dates: start: 20240919
  9. VENTOLIN HFA [Concomitant]
     Active Substance: ALBUTEROL SULFATE
     Indication: Dyspnoea
  10. Maalox Advanced [Concomitant]
     Route: 048
     Dates: start: 20240913
  11. ELAVIL [Concomitant]
     Active Substance: AMITRIPTYLINE HYDROCHLORIDE
     Route: 048
     Dates: start: 20240402
  12. AUGMENTIN [Concomitant]
     Active Substance: AMOXICILLIN\CLAVULANATE POTASSIUM
     Dosage: 1 DOSAGE FORM (875-125MG), BID
     Dates: start: 20250129
  13. ASTELIN [Concomitant]
     Active Substance: AZELASTINE HYDROCHLORIDE
     Dosage: 137 MICROGRAM (TWO SPRAYS IN EACH NOSTRIL), BID
     Route: 045
     Dates: start: 20250117
  14. FLUTICASONE [Concomitant]
     Active Substance: FLUTICASONE
     Dosage: UNK UNK, BID
     Route: 045
     Dates: start: 20250117
  15. BETAMETHASONE DIPROPIONATE [Concomitant]
     Active Substance: BETAMETHASONE DIPROPIONATE
     Dosage: BID, THEN APPLY DAILY WITH CALCIPOTRIENE X 2 WEEKS THEN USE CALCIPOTRIENE, MONDAY-THURSDAY AND BETAM
     Route: 061
     Dates: start: 20240918
  16. DOVONEX [Concomitant]
     Active Substance: CALCIPOTRIENE
     Dosage: QD,  THEN APPLY DAILY WITH BETAMETHASONE X 2 WEEKS THEN USE CALCIPOTRIENE MONDAY - THURSDAY AND BETA
     Route: 061
     Dates: start: 20240918
  17. DEBROX [Concomitant]
     Active Substance: CARBAMIDE PEROXIDE
     Dosage: OCTIC SOLUTION, BID ( 5 DROPS INTO BOTH EARS)
     Dates: start: 20241016
  18. VITAMIN D3 [Concomitant]
     Active Substance: CHOLECALCIFEROL
  19. LOTRISONE [Concomitant]
     Active Substance: BETAMETHASONE DIPROPIONATE\CLOTRIMAZOLE
     Indication: Rash
     Route: 061
     Dates: start: 20240319
  20. ERGOCALCIFEROL [Concomitant]
     Active Substance: ERGOCALCIFEROL
     Dosage: QWK (50000 UNIT)
     Route: 048
     Dates: start: 20240506
  21. NEXIUM [Concomitant]
     Active Substance: ESOMEPRAZOLE MAGNESIUM
     Dosage: 40 MILLIGRAM, BID (BEFORE MEAL)
     Route: 048
     Dates: start: 20241223
  22. PEPCID [Concomitant]
     Active Substance: FAMOTIDINE
     Dosage: 40 MILLIGRAM, BID
     Route: 048
     Dates: start: 20241223
  23. DIFLUCAN [Concomitant]
     Active Substance: FLUCONAZOLE
     Dosage: 150 MILLIGRAM, QD
     Route: 048
     Dates: start: 20250210
  24. ARNUITY ELLIPTA [Concomitant]
     Active Substance: FLUTICASONE FUROATE
     Dosage: UNK UNK, QD (INHALE 1 PUFF INTO THE LUNGS ONCE DAILY RINSE MOUTH AFTER EACH USE)
     Dates: start: 20240919
  25. FLONASE [Concomitant]
     Active Substance: FLUTICASONE PROPIONATE
     Dosage: UNK UNK, BID (1 SPRAY INTO EACH NOSTRIL TWICE A DAY)
     Dates: start: 20240929
  26. KETAMINE [Concomitant]
     Active Substance: KETAMINE
     Dosage: 1 DOSAGE FORM, QID
     Route: 048
     Dates: start: 20241203
  27. XYZAL [Concomitant]
     Active Substance: LEVOCETIRIZINE DIHYDROCHLORIDE
     Dosage: 5 MILLIGRAM, QD (EVENING)
     Route: 048
     Dates: start: 20250129
  28. MOBIC [Concomitant]
     Active Substance: MELOXICAM
     Dosage: 7.5 MILLIGRAM, QD
     Route: 048
     Dates: start: 20250203
  29. ROBAXIN [Concomitant]
     Active Substance: METHOCARBAMOL
     Indication: Muscle spasms
     Route: 048
     Dates: start: 20240402
  30. TOPROL XL [Concomitant]
     Active Substance: METOPROLOL SUCCINATE
     Dosage: 50 MILLIGRAM, QD (EVENING)
     Route: 048
     Dates: start: 20240507
  31. SINGULAIR [Concomitant]
     Active Substance: MONTELUKAST SODIUM
     Dosage: 10 MILLIGRAM, QD (EVENING)
     Route: 048
     Dates: start: 20250117
  32. NALTREXONE [Concomitant]
     Active Substance: NALTREXONE
     Dosage: 4.5 MILLIGRAM, BID
     Route: 048
     Dates: start: 20231122
  33. ZOFRAN [Concomitant]
     Active Substance: ONDANSETRON HYDROCHLORIDE
     Dosage: 4 MILLIGRAM, BID
     Route: 048
  34. TOPAMAX [Concomitant]
     Active Substance: TOPIRAMATE
     Dosage: 50 MILLIGRAM, BID
     Route: 048
     Dates: start: 20241011
  35. COVID-19 vaccine mRNA [Concomitant]
  36. HUMAN HEPATITIS B VIRUS IMMUNE GLOBULIN [Concomitant]
     Active Substance: HUMAN HEPATITIS B VIRUS IMMUNE GLOBULIN
  37. INFLUENZA VIRUS VACCINE [Concomitant]
     Active Substance: INFLUENZA VIRUS VACCINE
  38. KEVZARA [Concomitant]
     Active Substance: SARILUMAB
     Dates: start: 201904
  39. METHOTREXATE SODIUM [Concomitant]
     Active Substance: METHOTREXATE SODIUM
     Indication: Rheumatoid arthritis
     Dosage: 7.5 MILLIGRAM, QWK (STARTED YEARS AGO, D/C, RESTARTED APR/2019 AND D/C IN EARLT SEP/2019
  40. XELJANZ [Concomitant]
     Active Substance: TOFACITINIB CITRATE
     Dates: start: 201707, end: 201904
  41. ORENCIA [Concomitant]
     Active Substance: ABATACEPT
     Indication: Rheumatoid arthritis
     Dosage: 1000 MILLIGRAM, QMO
     Dates: start: 2010
  42. SIMPONI ARIA [Concomitant]
     Active Substance: GOLIMUMAB
  43. PNEUMOCOCCAL 13-VALENT CONJUGATE VACCINE [Concomitant]
     Active Substance: PNEUMOCOCCAL 13-VALENT CONJUGATE VACCINE
     Dates: start: 20171205
  44. Pneumococcal vaccine conj 20v (CRM197) [Concomitant]
  45. PNEUMOCOCCAL VACCINE, POLYVALENT 23 [Concomitant]
     Active Substance: PNEUMOCOCCAL VACCINE, POLYVALENT 23
     Dates: start: 20180228
  46. TETANUS TOXOID, REDUCED DIPHTHERIA TOXOID AND ACELLULAR PERTUSSIS VACC [Concomitant]
     Active Substance: TETANUS TOXOID, REDUCED DIPHTHERIA TOXOID AND ACELLULAR PERTUSSIS VACCINE ADSORBED, TDAP
     Dates: start: 20171202
  47. Zoster [Concomitant]
     Dates: start: 20200817

REACTIONS (35)
  - Rheumatoid arthritis [Not Recovered/Not Resolved]
  - Bronchiolitis [Not Recovered/Not Resolved]
  - Immunosuppression [Not Recovered/Not Resolved]
  - Pulmonary embolism [Not Recovered/Not Resolved]
  - Hypothyroidism [Not Recovered/Not Resolved]
  - Seizure like phenomena [Unknown]
  - Sinus disorder [Unknown]
  - Nasal disorder [Unknown]
  - Asthma [Unknown]
  - Psoriasis [Not Recovered/Not Resolved]
  - Anxiety [Not Recovered/Not Resolved]
  - Fibromyalgia [Not Recovered/Not Resolved]
  - Depression [Not Recovered/Not Resolved]
  - Diarrhoea [Unknown]
  - Therapy interrupted [Unknown]
  - Dysphagia [Unknown]
  - Restrictive pulmonary disease [Not Recovered/Not Resolved]
  - Cough [Not Recovered/Not Resolved]
  - Hyperparathyroidism [Not Recovered/Not Resolved]
  - Spinal osteoarthritis [Not Recovered/Not Resolved]
  - Chronic gastritis [Not Recovered/Not Resolved]
  - Pain [Not Recovered/Not Resolved]
  - Obesity [Not Recovered/Not Resolved]
  - Thrombocytosis [Not Recovered/Not Resolved]
  - Apathy [Not Recovered/Not Resolved]
  - Central pain syndrome [Not Recovered/Not Resolved]
  - Intervertebral disc degeneration [Not Recovered/Not Resolved]
  - Gastrooesophageal reflux disease [Not Recovered/Not Resolved]
  - Influenza [Unknown]
  - Gastrointestinal disorder [Unknown]
  - Swelling [Unknown]
  - Rash [Unknown]
  - Urticaria [Unknown]
  - Restless legs syndrome [Unknown]
  - Blood iron decreased [Unknown]

NARRATIVE: CASE EVENT DATE: 20121130
